FAERS Safety Report 20062166 (Version 1)
Quarter: 2021Q4

REPORT INFORMATION
  Report Type: Other
  Country: EG (occurrence: None)
  Receive Date: 20211112
  Receipt Date: 20211112
  Transmission Date: 20220304
  Serious: Yes (Other)
  Sender: FDA-Public Use
  Company Number: EG-ROCHE-2950705

PATIENT

DRUGS (7)
  1. RIBAVIRIN [Suspect]
     Active Substance: RIBAVIRIN
     Indication: Hepatitis C
     Dosage: 1000 MG/DAY (FOR THOSE PATIENTS WITH BODY WEIGHT LESS THAN 75 KG) OR 1200 MG/DAY (FOR THOSE PATIENTS
     Route: 048
  2. SOFOSBUVIR [Suspect]
     Active Substance: SOFOSBUVIR
     Indication: Hepatitis C
     Route: 065
  3. OMBITASVIR [Suspect]
     Active Substance: OMBITASVIR
     Indication: Hepatitis C
     Route: 065
  4. PARITAPREVIR [Suspect]
     Active Substance: PARITAPREVIR
     Indication: Hepatitis C
     Route: 065
  5. RITONAVIR [Suspect]
     Active Substance: RITONAVIR
     Indication: Hepatitis C
     Route: 065
  6. SIMEPREVIR [Suspect]
     Active Substance: SIMEPREVIR
     Indication: Hepatitis C
     Route: 065
  7. DACLATASVIR [Suspect]
     Active Substance: DACLATASVIR
     Indication: Hepatitis C
     Route: 065

REACTIONS (2)
  - Hyperbilirubinaemia [Unknown]
  - Anaemia [Unknown]
